FAERS Safety Report 9059372 (Version 1)
Quarter: 2013Q1

REPORT INFORMATION
  Report Type: Spontaneous
  Country: US (occurrence: US)
  Receive Date: 20130211
  Receipt Date: 20130211
  Transmission Date: 20140127
  Serious: Yes (Other)
  Sender: FDA-Public Use
  Company Number: CHPA2013US002597

PATIENT
  Age: 2 Year
  Sex: Female

DRUGS (1)
  1. TRIAMINIC DAY TIME COLD + COUGH [Suspect]
     Dosage: UNK, UNK
     Route: 048
     Dates: start: 20121117, end: 20121117

REACTIONS (3)
  - Overdose [Unknown]
  - Incorrect dose administered [Unknown]
  - No adverse event [Unknown]
